FAERS Safety Report 8955289 (Version 1)
Quarter: 2012Q4

REPORT INFORMATION
  Report Type: Spontaneous
  Country: US (occurrence: None)
  Receive Date: 20121205
  Receipt Date: 20121205
  Transmission Date: 20130627
  Serious: Yes (Life-Threatening, Hospitalization, Other)
  Sender: FDA-Public Use
  Company Number: None

PATIENT
  Age: 74 Year
  Sex: Male
  Weight: 77.11 kg

DRUGS (1)
  1. BENICAR DAIICHI SANKYO [Suspect]
     Indication: BLOOD PRESSURE HIGH
     Dates: start: 2007, end: 2012

REACTIONS (3)
  - Coeliac disease [None]
  - Gastrointestinal disorder [None]
  - Renal failure [None]
